FAERS Safety Report 13397407 (Version 2)
Quarter: 2017Q2

REPORT INFORMATION
  Report Type: Spontaneous
  Country: US (occurrence: US)
  Receive Date: 20170403
  Receipt Date: 20170406
  Transmission Date: 20170830
  Serious: Yes (Other)
  Sender: FDA-Public Use
  Company Number: US-CELGENEUS-USA-20170310078

PATIENT
  Sex: Male

DRUGS (1)
  1. REVLIMID [Suspect]
     Active Substance: LENALIDOMIDE
     Indication: MANTLE CELL LYMPHOMA
     Dosage: 2.5 MILLIGRAM
     Route: 048
     Dates: start: 201702

REACTIONS (2)
  - Therapy non-responder [Unknown]
  - Hypoacusis [Unknown]

NARRATIVE: CASE EVENT DATE: 2017
